FAERS Safety Report 5085884-9 (Version None)
Quarter: 2006Q3

REPORT INFORMATION
  Report Type: 
  Country: None (occurrence: None)
  Receive Date: 20060817
  Receipt Date: 20060810
  Transmission Date: 20061208
  Serious: Yes (Hospitalization)
  Sender: FDA-Public Use
  Company Number: SUS1-2006-00450

PATIENT
  Age: 74 Year
  Sex: Male
  Weight: 73.5 kg

DRUGS (6)
  1. AGRYLIN [Suspect]
     Indication: MYELOPROLIFERATIVE DISORDER
     Dosage: 0.5 MG TO 1 MG DAILY, UNK, ORAL - SEE IMAGE
     Route: 048
     Dates: start: 20050421, end: 20051001
  2. AGRYLIN [Suspect]
     Indication: MYELOPROLIFERATIVE DISORDER
     Dosage: 0.5 MG TO 1 MG DAILY, UNK, ORAL - SEE IMAGE
     Route: 048
     Dates: start: 20051101
  3. COUMADIN [Concomitant]
  4. PROSCAR [Concomitant]
  5. COREG [Concomitant]
  6. LASIX [Concomitant]

REACTIONS (5)
  - CARDIAC FAILURE CONGESTIVE [None]
  - CARDIAC VALVE DISEASE [None]
  - DRUG TOXICITY [None]
  - INTERNATIONAL NORMALISED RATIO INCREASED [None]
  - PLATELET COUNT DECREASED [None]
